FAERS Safety Report 13413422 (Version 1)
Quarter: 2017Q2

REPORT INFORMATION
  Report Type: Spontaneous
  Country: US (occurrence: US)
  Receive Date: 20170407
  Receipt Date: 20170407
  Transmission Date: 20170830
  Serious: Yes (Hospitalization)
  Sender: FDA-Public Use
  Company Number: PHEH2017US009288

PATIENT
  Sex: Male
  Weight: 168.7 kg

DRUGS (1)
  1. COSENTYX [Suspect]
     Active Substance: SECUKINUMAB
     Indication: PSORIASIS
     Dosage: 300 MG, DAY 28, THEN EVERY 4 WEEKS
     Route: 058
     Dates: start: 20160601

REACTIONS (2)
  - Pneumonia [Unknown]
  - Drug ineffective [Unknown]
